FAERS Safety Report 25879752 (Version 1)
Quarter: 2025Q4

REPORT INFORMATION
  Report Type: Report from Study
  Country: US (occurrence: US)
  Receive Date: 20251003
  Receipt Date: 20251003
  Transmission Date: 20260118
  Serious: Yes (Hospitalization, Other)
  Sender: ABBVIE
  Company Number: US-ABBVIE-6436373

PATIENT
  Age: 24 Year
  Sex: Female
  Weight: 67 kg

DRUGS (8)
  1. SKYRIZI [Suspect]
     Active Substance: RISANKIZUMAB-RZAA
     Indication: Crohn^s disease
     Route: 058
     Dates: start: 2024
  2. SKYRIZI [Suspect]
     Active Substance: RISANKIZUMAB-RZAA
     Route: 058
     Dates: start: 20240410
  3. Adavantis [Concomitant]
     Indication: Anxiety
     Dosage: 1 MILLIGRAM, ONGOING
  4. HYDROXYZINE [Concomitant]
     Active Substance: HYDROXYZINE HYDROCHLORIDE
     Indication: Anxiety
     Dosage: AS NEEDED ?STOP DATE TEXT: ONGOING
  5. QUETIAPINE [Concomitant]
     Active Substance: QUETIAPINE
     Indication: Bipolar disorder
     Dosage: ONGOING
  6. TYLENOL [Concomitant]
     Active Substance: ACETAMINOPHEN
     Indication: Product used for unknown indication
     Dosage: AS NEEDED?ONGOING
  7. LAMOTRIGINE [Concomitant]
     Active Substance: LAMOTRIGINE
     Indication: Mood swings
     Dosage: ONGOING
  8. SKYRIZI [Suspect]
     Active Substance: RISANKIZUMAB-RZAA
     Indication: Crohn^s disease
     Dosage: UNKNOWN
     Route: 042
     Dates: start: 20240410, end: 202406

REACTIONS (13)
  - Road traffic accident [Recovered/Resolved]
  - Face injury [Recovered/Resolved]
  - Shoulder fracture [Recovered/Resolved]
  - Pain [Recovered/Resolved]
  - Irritable bowel syndrome [Recovered/Resolved]
  - Muscle injury [Recovered/Resolved]
  - Concussion [Recovered/Resolved]
  - Amnesia [Recovered/Resolved]
  - Craniofacial fracture [Recovered/Resolved]
  - Stress [Recovered/Resolved]
  - Diarrhoea [Recovered/Resolved]
  - Loss of consciousness [Recovered/Resolved]
  - Tissue injury [Recovered/Resolved]

NARRATIVE: CASE EVENT DATE: 20250101
